FAERS Safety Report 8448264-1 (Version None)
Quarter: 2012Q2

REPORT INFORMATION
  Report Type: 
  Country: None (occurrence: None)
  Receive Date: 20120619
  Receipt Date: 20120604
  Transmission Date: 20120825
  Serious: No
  Sender: FDA-Public Use
  Company Number: US-ASTRAZENECA-2012SE37279

PATIENT
  Sex: Female
  Weight: 104.8 kg

DRUGS (8)
  1. SUTENT [Suspect]
     Route: 065
  2. VITAMIN B-12 [Concomitant]
  3. NEXIUM [Suspect]
     Route: 048
     Dates: start: 20120401
  4. SUTENT [Suspect]
     Route: 065
  5. IRON PILL [Concomitant]
  6. SUTENT [Suspect]
     Route: 065
  7. LORAZEPAM [Concomitant]
  8. SUTENT [Suspect]
     Route: 065

REACTIONS (9)
  - HEART RATE INCREASED [None]
  - CONSTIPATION [None]
  - MALAISE [None]
  - DIARRHOEA [None]
  - WEIGHT DECREASED [None]
  - DRY MOUTH [None]
  - HYPERTENSION [None]
  - NAUSEA [None]
  - STOMATITIS [None]
